FAERS Safety Report 5788514-3 (Version None)
Quarter: 2008Q2

REPORT INFORMATION
  Report Type: 
  Country: None (occurrence: None)
  Receive Date: 20080625
  Receipt Date: 20080625
  Transmission Date: 20081010
  Serious: Yes (Other)
  Sender: FDA-Public Use
  Company Number: None

PATIENT
  Sex: Female
  Weight: 86.1834 kg

DRUGS (4)
  1. ZOCOR [Suspect]
     Indication: HYPERCHOLESTEROLAEMIA
     Dosage: PO
     Route: 048
     Dates: start: 20050101
  2. ZOCOR [Suspect]
     Indication: HYPERCHOLESTEROLAEMIA
     Dosage: PO
     Route: 048
     Dates: start: 20060101
  3. CRESTOR [Suspect]
  4. VYTORIN [Concomitant]

REACTIONS (1)
  - MYALGIA [None]
